FAERS Safety Report 19095894 (Version 1)
Quarter: 2021Q2

REPORT INFORMATION
  Report Type: Spontaneous
  Country: JP (occurrence: JP)
  Receive Date: 20210406
  Receipt Date: 20210406
  Transmission Date: 20210717
  Serious: Yes (Other)
  Sender: FDA-Public Use
  Company Number: JP-ADVANZ PHARMA-202009008470

PATIENT

DRUGS (5)
  1. HYDROXYCHLOROQUINE SULFATE (AUTHORIZED GENERIC),PLAQUENIL [Suspect]
     Active Substance: HYDROXYCHLOROQUINE SULFATE
     Dosage: 200 MG, QOD, FILM?COATED TABLET
     Route: 048
     Dates: start: 20161102, end: 20200525
  2. PREDNISOLONE. [Concomitant]
     Active Substance: PREDNISOLONE
     Indication: SYSTEMIC LUPUS ERYTHEMATOSUS
     Dosage: UNK
     Dates: start: 20200324
  3. EDIROL [Concomitant]
     Active Substance: ELDECALCITOL
     Indication: OSTEOPOROSIS
     Dosage: CAPSULE
     Dates: start: 20161012
  4. HYDROXYCHLOROQUINE SULFATE (AUTHORIZED GENERIC),PLAQUENIL [Suspect]
     Active Substance: HYDROXYCHLOROQUINE SULFATE
     Indication: SYSTEMIC LUPUS ERYTHEMATOSUS
     Dosage: 200 MG, QD (REDUCED), FILM?COATED TABLET
     Route: 048
     Dates: start: 20200526, end: 20200827
  5. HYDROXYCHLOROQUINE SULFATE (AUTHORIZED GENERIC),PLAQUENIL [Suspect]
     Active Substance: HYDROXYCHLOROQUINE SULFATE
     Dosage: 400 MG, QOD, FILM?COATED TABLET
     Route: 048
     Dates: start: 20161103, end: 20200526

REACTIONS (2)
  - Acquired pigmented retinopathy [Not Recovered/Not Resolved]
  - Visual field tests abnormal [Not Recovered/Not Resolved]

NARRATIVE: CASE EVENT DATE: 20200827
